FAERS Safety Report 11642215 (Version 1)
Quarter: 2015Q4

REPORT INFORMATION
  Report Type: Spontaneous
  Country: US (occurrence: US)
  Receive Date: 20151019
  Receipt Date: 20151019
  Transmission Date: 20160304
  Serious: Yes (Hospitalization)
  Sender: FDA-Public Use
  Company Number: US-PFIZER INC-2015346676

PATIENT
  Sex: Female

DRUGS (1)
  1. VERAPAMIL HCL [Suspect]
     Active Substance: VERAPAMIL HYDROCHLORIDE
     Dosage: UNK

REACTIONS (5)
  - Drug intolerance [Unknown]
  - Tachycardia [Unknown]
  - Ventricular extrasystoles [Unknown]
  - Extrasystoles [Unknown]
  - Drug ineffective [Unknown]
